FAERS Safety Report 12783222 (Version 1)
Quarter: 2016Q3

REPORT INFORMATION
  Report Type: Spontaneous
  Country: US (occurrence: US)
  Receive Date: 20160927
  Receipt Date: 20160927
  Transmission Date: 20161109
  Serious: Yes (Other)
  Sender: FDA-Public Use
  Company Number: US-BEH-2012033121

PATIENT
  Sex: Male

DRUGS (1)
  1. HIZENTRA [Suspect]
     Active Substance: HUMAN IMMUNOGLOBULIN G
     Dosage: 3 HOUR INFUSION
     Route: 058

REACTIONS (4)
  - Flushing [Recovered/Resolved]
  - Arrhythmia [Unknown]
  - Adverse reaction [Unknown]
  - Hypotension [Recovered/Resolved]
